FAERS Safety Report 7549011-8 (Version None)
Quarter: 2011Q2

REPORT INFORMATION
  Report Type: 
  Country: None (occurrence: None)
  Receive Date: 20110615
  Receipt Date: 20110602
  Transmission Date: 20111010
  Serious: Yes (Hospitalization)
  Sender: FDA-Public Use
  Company Number: CA-ROCHE-780832

PATIENT
  Age: 10 Month
  Sex: Male

DRUGS (4)
  1. METHYLPREDNISOLONE SODIUM SUCCINATE [Suspect]
     Route: 065
  2. RAPAMUNE [Suspect]
     Route: 065
  3. TACROLIMUS [Suspect]
     Route: 065
  4. ZENAPAX [Suspect]
     Dosage: FORM: LIQUID STRENGTH: 5MG/ML
     Route: 042

REACTIONS (11)
  - VOMITING [None]
  - GASTROINTESTINAL NECROSIS [None]
  - APOPTOSIS [None]
  - PYREXIA [None]
  - CYTOMEGALOVIRUS TEST POSITIVE [None]
  - GASTROENTERITIS NOROVIRUS [None]
  - GASTROINTESTINAL STOMA COMPLICATION [None]
  - VOLVULUS [None]
  - RETCHING [None]
  - ADENOVIRUS INFECTION [None]
  - BIOPSY SMALL INTESTINE ABNORMAL [None]
